FAERS Safety Report 5179054-3 (Version None)
Quarter: 2006Q4

REPORT INFORMATION
  Report Type: 
  Country: None (occurrence: None)
  Receive Date: 20061219
  Receipt Date: 20061212
  Transmission Date: 20070319
  Serious: Yes (Other)
  Sender: FDA-Public Use
  Company Number: FR-AVENTIS-200614387FR

PATIENT
  Age: 52 Year
  Sex: Female

DRUGS (5)
  1. FLAGYL [Suspect]
     Indication: TOOTH DISORDER
     Route: 048
     Dates: start: 20061201, end: 20061201
  2. TAHOR [Concomitant]
     Indication: HYPERCHOLESTEROLAEMIA
  3. TENORMIN [Concomitant]
  4. ASPIRIN [Concomitant]
  5. INEGY [Concomitant]
     Indication: HYPERCHOLESTEROLAEMIA

REACTIONS (3)
  - MONONEURITIS [None]
  - PARAESTHESIA [None]
  - PARALYSIS [None]
